FAERS Safety Report 5805367-5 (Version None)
Quarter: 2008Q3

REPORT INFORMATION
  Report Type: 
  Country: None (occurrence: None)
  Receive Date: 20080702
  Receipt Date: 20071026
  Transmission Date: 20090109
  Serious: Yes (Other)
  Sender: FDA-Public Use
  Company Number: US-WYE-H00970907

PATIENT
  Age: 64 Year
  Sex: Female
  Weight: 76.27 kg

DRUGS (1)
  1. ADVIL [Suspect]
     Indication: DENTAL DISCOMFORT
     Dosage: 1 TABLET AS NEEDED, ORAL
     Route: 047
     Dates: start: 20060101, end: 20060101

REACTIONS (2)
  - ERYTHEMA [None]
  - HYPOAESTHESIA [None]
